FAERS Safety Report 7458239-7 (Version None)
Quarter: 2011Q2

REPORT INFORMATION
  Report Type: 
  Country: None (occurrence: None)
  Receive Date: 20110504
  Receipt Date: 20110429
  Transmission Date: 20111010
  Serious: Yes (Life-Threatening, Hospitalization)
  Sender: FDA-Public Use
  Company Number: FR-MERCK-1104FRA00150

PATIENT
  Age: 67 Year
  Sex: Male
  Weight: 106 kg

DRUGS (7)
  1. VERAPAMIL HYDROCHLORIDE [Concomitant]
     Route: 065
  2. METFORMIN PAMOATE [Concomitant]
     Indication: TYPE 2 DIABETES MELLITUS
     Route: 048
     Dates: start: 20100401, end: 20110210
  3. EZETIMIBE AND SIMVASTATIN [Concomitant]
     Route: 065
  4. JANUVIA [Suspect]
     Indication: TYPE 2 DIABETES MELLITUS
     Route: 048
     Dates: start: 20101015, end: 20110210
  5. REPAGLINIDE [Concomitant]
     Indication: TYPE 2 DIABETES MELLITUS
     Route: 048
     Dates: start: 20101015, end: 20110404
  6. METFFORMIN HYDROCHLORIDE [Suspect]
     Indication: TYPE 2 DIABETES MELLITUS
     Route: 048
     Dates: start: 20110211, end: 20110404
  7. CANDESARTAN CILEXETIL [Concomitant]
     Route: 065

REACTIONS (1)
  - METABOLIC ACIDOSIS [None]
